FAERS Safety Report 20719384 (Version 1)
Quarter: 2022Q2

REPORT INFORMATION
  Report Type: Spontaneous
  Country: US (occurrence: US)
  Receive Date: 20220418
  Receipt Date: 20220418
  Transmission Date: 20220721
  Serious: Yes (Other)
  Sender: FDA-Public Use
  Company Number: US-SA-SAC20220414000103

PATIENT
  Age: 67 Year
  Sex: Male
  Weight: 70.748 kg

DRUGS (10)
  1. AUBAGIO [Suspect]
     Active Substance: TERIFLUNOMIDE
     Indication: Multiple sclerosis
     Dosage: 14MG QD
     Route: 048
     Dates: start: 2017
  2. TORADOL [Suspect]
     Active Substance: KETOROLAC TROMETHAMINE
  3. MAGNESIUM [Concomitant]
     Active Substance: MAGNESIUM
  4. IBUPROFEN [Concomitant]
     Active Substance: IBUPROFEN
  5. BACLOFEN [Concomitant]
     Active Substance: BACLOFEN
  6. VITAMIN D3 [Concomitant]
     Active Substance: CHOLECALCIFEROL
     Dosage: 120MG-1000
  7. VITAMIN C [Concomitant]
     Active Substance: ASCORBIC ACID
  8. AMPHETAMINE SULFATE [Concomitant]
     Active Substance: AMPHETAMINE SULFATE
  9. LEVOTHYROXINE SODIUM [Concomitant]
     Active Substance: LEVOTHYROXINE SODIUM
  10. DALFAMPRIDINE [Concomitant]
     Active Substance: DALFAMPRIDINE
     Dosage: BID

REACTIONS (12)
  - Haemorrhage [Unknown]
  - Gastric ulcer [Unknown]
  - Ulcer haemorrhage [Unknown]
  - Dry skin [Unknown]
  - Skin exfoliation [Unknown]
  - Muscle spasms [Unknown]
  - Muscle strain [Recovering/Resolving]
  - COVID-19 [Unknown]
  - Peripheral swelling [Unknown]
  - Skin discolouration [Unknown]
  - Nail disorder [Unknown]
  - Drug ineffective [Unknown]

NARRATIVE: CASE EVENT DATE: 20210101
